FAERS Safety Report 16078231 (Version 1)
Quarter: 2019Q1

REPORT INFORMATION
  Report Type: Spontaneous
  Country: US (occurrence: US)
  Receive Date: 20190315
  Receipt Date: 20190315
  Transmission Date: 20190418
  Serious: No
  Sender: FDA-Public Use
  Company Number: US-SA-2019SA066628

PATIENT
  Sex: Male

DRUGS (1)
  1. ACT GENERIC (SODIUM FLUORIDE) [Suspect]
     Active Substance: SODIUM FLUORIDE
     Route: 065

REACTIONS (1)
  - Urticaria [Unknown]
